FAERS Safety Report 15991807 (Version 1)
Quarter: 2019Q1

REPORT INFORMATION
  Report Type: Spontaneous
  Country: US (occurrence: US)
  Receive Date: 20190221
  Receipt Date: 20190221
  Transmission Date: 20190418
  Serious: No
  Sender: FDA-Public Use
  Company Number: US-TEVA-2019-US-1003641

PATIENT
  Sex: Female

DRUGS (1)
  1. JUNEL FE 1/20 [Suspect]
     Active Substance: ETHINYL ESTRADIOL\NORETHINDRONE ACETATE
     Indication: MENSTRUATION IRREGULAR
     Dosage: FORM STRENGTH: NORETHINDRONE ACETATE 1.5 MG AND ETHINYL ESTRADIOL 30 MCG
     Route: 065
     Dates: start: 2018

REACTIONS (6)
  - Metrorrhagia [Unknown]
  - Hypomenorrhoea [Unknown]
  - Product use in unapproved indication [Unknown]
  - Dysmenorrhoea [Unknown]
  - Product quality issue [Unknown]
  - Menorrhagia [Unknown]

NARRATIVE: CASE EVENT DATE: 20190118
